APPROVED DRUG PRODUCT: NEOTHYLLINE
Active Ingredient: DYPHYLLINE
Strength: 400MG
Dosage Form/Route: TABLET;ORAL
Application: N007794 | Product #002
Applicant: TEVA PHARMACEUTICALS USA INC
Approved: Approved Prior to Jan 1, 1982 | RLD: No | RS: No | Type: DISCN